FAERS Safety Report 6698896-6 (Version None)
Quarter: 2010Q2

REPORT INFORMATION
  Report Type: 
  Country: None (occurrence: None)
  Receive Date: 20100427
  Receipt Date: 20100416
  Transmission Date: 20101027
  Serious: Yes (Hospitalization)
  Sender: FDA-Public Use
  Company Number: FR-MERCK-1004FRA00070

PATIENT
  Age: 68 Year
  Sex: Male

DRUGS (5)
  1. PRIMAXIN [Suspect]
     Indication: PSEUDOMONAS INFECTION
     Route: 042
     Dates: start: 20100203, end: 20100208
  2. ESOMEPRAZOLE MAGNESIUM [Suspect]
     Route: 065
  3. CEFTRIAXONE SODIUM [Concomitant]
     Indication: PSEUDOMONAS INFECTION
     Route: 065
     Dates: end: 20100203
  4. LEVOFLOXACIN [Concomitant]
     Indication: PSEUDOMONAS INFECTION
     Route: 065
     Dates: end: 20100203
  5. AMIKACIN SULFATE [Concomitant]
     Indication: PSEUDOMONAS INFECTION
     Route: 065
     Dates: start: 20100203

REACTIONS (1)
  - TOXIC SKIN ERUPTION [None]
